FAERS Safety Report 4416533-8 (Version None)
Quarter: 2004Q3

REPORT INFORMATION
  Report Type: 
  Country: None (occurrence: None)
  Receive Date: 20040802
  Receipt Date: 20040722
  Transmission Date: 20050211
  Serious: Yes (Hospitalization)
  Sender: FDA-Public Use
  Company Number: CIP04001642

PATIENT

DRUGS (1)
  1. DANTRIUM [Suspect]
     Dosage: ORAL
     Route: 048

REACTIONS (1)
  - PLEURISY [None]
